FAERS Safety Report 9886493 (Version 1)
Quarter: 2014Q1

REPORT INFORMATION
  Report Type: Report from Study
  Country: MX (occurrence: MX)
  Receive Date: 20140210
  Receipt Date: 20140210
  Transmission Date: 20141002
  Serious: Yes (Death)
  Sender: FDA-Public Use
  Company Number: PHHY2014MX016167

PATIENT
  Age: 34 Year
  Sex: Male

DRUGS (2)
  1. TRILEPTAL [Suspect]
     Indication: EPILEPSY
     Dosage: 600 MG, UNK
     Route: 048
  2. TRILEPTAL [Suspect]
     Indication: DIABETES MELLITUS

REACTIONS (1)
  - Death [Fatal]
